FAERS Safety Report 5693913-4 (Version None)
Quarter: 2008Q2

REPORT INFORMATION
  Report Type: 
  Country: None (occurrence: None)
  Receive Date: 20080403
  Receipt Date: 20080325
  Transmission Date: 20081010
  Serious: Yes (Other)
  Sender: FDA-Public Use
  Company Number: US-PFIZER INC-2008027027

PATIENT
  Sex: Female
  Weight: 56.2 kg

DRUGS (5)
  1. LYRICA [Suspect]
     Indication: PAIN
  2. ACETAMINOPHEN AND OXYCODONE HCL [Concomitant]
  3. RITALIN [Concomitant]
  4. CYMBALTA [Concomitant]
  5. MAGNESIUM [Concomitant]

REACTIONS (3)
  - ARTHRALGIA [None]
  - JOINT RANGE OF MOTION DECREASED [None]
  - JOINT SWELLING [None]
